FAERS Safety Report 19969285 (Version 1)
Quarter: 2021Q4

REPORT INFORMATION
  Report Type: Spontaneous
  Country: US (occurrence: US)
  Receive Date: 20211019
  Receipt Date: 20211019
  Transmission Date: 20220303
  Serious: Yes (Death)
  Sender: FDA-Public Use
  Company Number: US-CELGENE-USA-20211004507

PATIENT
  Age: 72 Year
  Sex: Male
  Weight: 69.01 kg

DRUGS (1)
  1. POMALYST [Suspect]
     Active Substance: POMALIDOMIDE
     Indication: Plasma cell myeloma
     Dosage: 2 MILLIGRAM
     Route: 048
     Dates: start: 20180503, end: 20210908

REACTIONS (1)
  - Death [Fatal]

NARRATIVE: CASE EVENT DATE: 20211010
